FAERS Safety Report 10440350 (Version 2)
Quarter: 2014Q3

REPORT INFORMATION
  Report Type: Spontaneous
  Country: GB (occurrence: GB)
  Receive Date: 20140909
  Receipt Date: 20140926
  Transmission Date: 20150326
  Serious: Yes (Other)
  Sender: FDA-Public Use
  Company Number: GB-AUROBINDO-AUR-APL-2014-09592

PATIENT
  Age: 76 Year
  Sex: Female

DRUGS (4)
  1. DONEPEZIL 10 MG (DONEPEZIL) UNKNOWN, 10MG [Suspect]
     Active Substance: DONEPEZIL
     Indication: EPILEPSY
     Dosage: 10 MG, DAILY
     Route: 065
  2. LEVETIRACETAM. [Suspect]
     Active Substance: LEVETIRACETAM
     Indication: AMNESIA
  3. LEVETIRACETAM. [Suspect]
     Active Substance: LEVETIRACETAM
     Indication: EPILEPSY
     Dosage: 1500 MG, TWO TIMES A DAY
     Route: 065
  4. DONEPEZIL 10 MG (DONEPEZIL) UNKNOWN, 10MG [Suspect]
     Active Substance: DONEPEZIL
     Indication: AMNESIA

REACTIONS (1)
  - Drug ineffective [Recovered/Resolved]
